FAERS Safety Report 7927151-9 (Version None)
Quarter: 2011Q4

REPORT INFORMATION
  Report Type: 
  Country: None (occurrence: None)
  Receive Date: 20111118
  Receipt Date: 20111109
  Transmission Date: 20120403
  Serious: Yes (Hospitalization, Other)
  Sender: FDA-Public Use
  Company Number: US-ELI_LILLY_AND_COMPANY-US201111002962

PATIENT
  Sex: Female
  Weight: 43 kg

DRUGS (3)
  1. PEMETREXED [Suspect]
     Indication: LUNG NEOPLASM MALIGNANT
     Dosage: 715 MG, 1 IN 3 WEEK
     Route: 042
     Dates: start: 20110609, end: 20110818
  2. OTHER PHARMA COMPANY INV DRUG [Suspect]
     Indication: LUNG NEOPLASM MALIGNANT
     Dosage: UNK, DAYS 2-19, CYCLIC
     Route: 048
     Dates: start: 20110610, end: 20110825
  3. OXYGEN [Concomitant]

REACTIONS (5)
  - CONFUSIONAL STATE [None]
  - PNEUMONIA [None]
  - INAPPROPRIATE SCHEDULE OF DRUG ADMINISTRATION [None]
  - INCORRECT DOSE ADMINISTERED [None]
  - DEHYDRATION [None]
